FAERS Safety Report 6361550-4 (Version None)
Quarter: 2009Q3

REPORT INFORMATION
  Report Type: 
  Country: None (occurrence: None)
  Receive Date: 20090918
  Receipt Date: 20090909
  Transmission Date: 20100115
  Serious: Yes (Other)
  Sender: FDA-Public Use
  Company Number: US-CELGENEUS-163-20785-09090710

PATIENT
  Sex: Male

DRUGS (4)
  1. THALOMID [Suspect]
     Indication: MULTIPLE MYELOMA
     Route: 048
     Dates: start: 20040301
  2. THALOMID [Suspect]
     Route: 048
     Dates: start: 20060101
  3. THALOMID [Suspect]
     Route: 048
     Dates: start: 20080201
  4. THALOMID [Suspect]
     Route: 048
     Dates: start: 20090901

REACTIONS (1)
  - COLECTOMY [None]
